FAERS Safety Report 14618810 (Version 3)
Quarter: 2018Q3

REPORT INFORMATION
  Report Type: Spontaneous
  Country: JP (occurrence: JP)
  Receive Date: 20180309
  Receipt Date: 20180808
  Transmission Date: 20181010
  Serious: Yes (Hospitalization, Other)
  Sender: FDA-Public Use
  Company Number: JP-PFIZER INC-2018092281

PATIENT
  Age: 78 Year
  Sex: Male

DRUGS (2)
  1. CELECOX [Suspect]
     Active Substance: CELECOXIB
     Indication: PERIARTHRITIS
     Dosage: 100 MG, 2X/DAY
     Route: 048
     Dates: start: 20180208, end: 20180220
  2. CELECOX [Suspect]
     Active Substance: CELECOXIB
     Indication: PAIN

REACTIONS (5)
  - Decreased appetite [Unknown]
  - Nausea [Unknown]
  - Dizziness [Unknown]
  - Interstitial lung disease [Unknown]
  - Vomiting [Unknown]

NARRATIVE: CASE EVENT DATE: 20180213
